FAERS Safety Report 8174937-4 (Version None)
Quarter: 2012Q1

REPORT INFORMATION
  Report Type: 
  Country: None (occurrence: None)
  Receive Date: 20120229
  Receipt Date: 20110919
  Transmission Date: 20120608
  Serious: No
  Sender: FDA-Public Use
  Company Number: US-GLAXOSMITHKLINE-A0945154A

PATIENT
  Age: 72 Year
  Sex: Female

DRUGS (2)
  1. FORTEO [Concomitant]
  2. VALTREX [Suspect]
     Indication: GENITAL HERPES
     Dosage: 500MG PER DAY
     Route: 048
     Dates: start: 20080101

REACTIONS (2)
  - ALOPECIA [None]
  - PRURITUS [None]
